FAERS Safety Report 8622804-1 (Version None)
Quarter: 2012Q3

REPORT INFORMATION
  Report Type: 
  Country: None (occurrence: None)
  Receive Date: 20120827
  Receipt Date: 20120822
  Transmission Date: 20120928
  Serious: Yes (Death, Life-Threatening, Hospitalization, Disabling)
  Sender: FDA-Public Use
  Company Number: US-JNJFOC-20120811046

PATIENT
  Sex: Female
  Weight: 98.43 kg

DRUGS (44)
  1. CINRYZE [Suspect]
     Route: 042
     Dates: start: 20120709, end: 20120709
  2. CINRYZE [Suspect]
     Route: 042
     Dates: start: 20111107, end: 20111107
  3. CINRYZE [Suspect]
     Route: 042
     Dates: start: 20120709, end: 20120709
  4. CINRYZE [Suspect]
     Route: 042
     Dates: start: 20101127, end: 20101127
  5. MELATONIN [Concomitant]
     Indication: INSOMNIA
     Route: 048
  6. CINRYZE [Suspect]
     Route: 042
     Dates: start: 20101127, end: 20101127
  7. CINRYZE [Suspect]
     Route: 042
     Dates: start: 20120206, end: 20120206
  8. CINRYZE [Suspect]
     Route: 042
     Dates: start: 20110824, end: 20110824
  9. CINRYZE [Suspect]
     Route: 042
     Dates: start: 20120206, end: 20120206
  10. CINRYZE [Suspect]
     Route: 042
     Dates: start: 20111107, end: 20111107
  11. CINRYZE [Suspect]
     Route: 042
     Dates: start: 20120628, end: 20120628
  12. CINRYZE [Suspect]
     Route: 042
     Dates: start: 20120213, end: 20120213
  13. CINRYZE [Suspect]
     Route: 042
     Dates: start: 20110824, end: 20110824
  14. CINRYZE [Suspect]
     Route: 042
     Dates: start: 20120213, end: 20120213
  15. CINRYZE [Suspect]
     Route: 042
     Dates: start: 20091001, end: 20091001
  16. EPIPEN [Concomitant]
     Indication: HYPERSENSITIVITY
     Route: 030
  17. CINRYZE [Suspect]
     Route: 042
     Dates: start: 20120628, end: 20120628
  18. CINRYZE [Suspect]
     Route: 042
     Dates: start: 20101127, end: 20101127
  19. CINRYZE [Suspect]
     Indication: HEREDITARY ANGIOEDEMA
     Route: 042
     Dates: start: 20120709, end: 20120709
  20. FEXOFENADINE [Concomitant]
     Indication: SEASONAL ALLERGY
     Route: 048
  21. FEXOFENADINE [Concomitant]
     Indication: HYPERSENSITIVITY
     Route: 048
  22. METOPROLOL TARTRATE [Concomitant]
     Indication: HYPERTENSION
     Route: 065
  23. NORTRIPTYLINE [Concomitant]
     Indication: PRODUCT USED FOR UNKNOWN INDICATION
     Route: 065
  24. CINRYZE [Suspect]
     Indication: ABDOMINAL DISTENSION
     Route: 042
     Dates: start: 20120206, end: 20120206
  25. CINRYZE [Suspect]
     Indication: NAUSEA
     Route: 042
     Dates: start: 20101127, end: 20101127
  26. CINRYZE [Suspect]
     Route: 042
     Dates: start: 20120628, end: 20120628
  27. CINRYZE [Suspect]
     Route: 042
     Dates: start: 20110824, end: 20110824
  28. CINRYZE [Suspect]
     Route: 042
     Dates: start: 20120206, end: 20120206
  29. CLONAZEPAM [Concomitant]
     Indication: ANXIETY
     Route: 048
  30. ORTHO TRI-CYCLEN LO [Suspect]
     Indication: CONTRACEPTION
     Route: 048
     Dates: start: 20120621
  31. CINRYZE [Suspect]
     Route: 042
     Dates: start: 20091001, end: 20091001
  32. CINRYZE [Suspect]
     Route: 042
     Dates: start: 20120213, end: 20120213
  33. CINRYZE [Suspect]
     Route: 042
     Dates: start: 20111107, end: 20111107
  34. CINRYZE [Suspect]
     Route: 042
     Dates: start: 20120213, end: 20120213
  35. PRILOSEC [Concomitant]
     Indication: GASTROOESOPHAGEAL REFLUX DISEASE
     Route: 065
  36. CITALOPRAM HYDROBROMIDE [Concomitant]
     Indication: DEPRESSION
     Route: 048
  37. CINRYZE [Suspect]
     Route: 042
     Dates: start: 20120709, end: 20120709
  38. CINRYZE [Suspect]
     Route: 042
     Dates: start: 20091001, end: 20091001
  39. CINRYZE [Suspect]
     Route: 042
     Dates: start: 20110824, end: 20110824
  40. CINRYZE [Suspect]
     Indication: PAIN
     Route: 042
     Dates: start: 20091001, end: 20091001
  41. CINRYZE [Suspect]
     Route: 042
     Dates: start: 20111107, end: 20111107
  42. CINRYZE [Suspect]
     Route: 042
     Dates: start: 20120628, end: 20120628
  43. NUVARING [Suspect]
     Indication: CONTRACEPTION
     Route: 065
     Dates: start: 20110827, end: 20110924
  44. REMERON [Concomitant]
     Indication: PRODUCT USED FOR UNKNOWN INDICATION
     Route: 048

REACTIONS (10)
  - BUNDLE BRANCH BLOCK RIGHT [None]
  - CONVULSION [None]
  - PULMONARY EMBOLISM [None]
  - OXYGEN SATURATION DECREASED [None]
  - CARDIAC ARREST [None]
  - SYNCOPE [None]
  - ABDOMINAL DISTENSION [None]
  - ABDOMINAL PAIN [None]
  - NAUSEA [None]
  - HYPOTENSION [None]
